FAERS Safety Report 13566627 (Version 1)
Quarter: 2017Q2

REPORT INFORMATION
  Report Type: Spontaneous
  Country: GR (occurrence: GR)
  Receive Date: 20170522
  Receipt Date: 20170522
  Transmission Date: 20170830
  Serious: Yes (Other)
  Sender: FDA-Public Use
  Company Number: GR-SUN PHARMACEUTICAL INDUSTRIES LTD-2016R1-113534

PATIENT
  Age: 61 Year
  Sex: Male

DRUGS (1)
  1. SULFASALAZINE. [Suspect]
     Active Substance: SULFASALAZINE
     Indication: COLITIS ULCERATIVE
     Dosage: UNK
     Route: 065

REACTIONS (3)
  - Obliterative bronchiolitis [Recovering/Resolving]
  - Eosinophilic pneumonia [Recovering/Resolving]
  - Eosinophilia [Recovering/Resolving]
